FAERS Safety Report 4495907-3 (Version None)
Quarter: 2004Q4

REPORT INFORMATION
  Report Type: 
  Country: None (occurrence: None)
  Receive Date: 20041103
  Receipt Date: 20041018
  Transmission Date: 20050328
  Serious: Yes (Other)
  Sender: FDA-Public Use
  Company Number: WAES 0310USA02059

PATIENT
  Age: 72 Year
  Sex: Female

DRUGS (2)
  1. ZOCOR [Suspect]
     Dosage: 40 MG DAILY PO
     Route: 048
  2. GEMFIBROZIL [Concomitant]

REACTIONS (3)
  - LIPID METABOLISM DISORDER [None]
  - MYOPATHY [None]
  - MYOSITIS [None]
